FAERS Safety Report 10547955 (Version 1)
Quarter: 2014Q4

REPORT INFORMATION
  Report Type: Spontaneous
  Country: US (occurrence: None)
  Receive Date: 20141027
  Receipt Date: 20141027
  Transmission Date: 20150529
  Serious: No
  Sender: FDA-Public Use
  Company Number: None

PATIENT
  Age: 49 Year
  Sex: Female
  Weight: 63.6 kg

DRUGS (19)
  1. TRAMADOL (ULTRAM) [Concomitant]
  2. FAMOTIDINE (PEPCID) [Concomitant]
  3. ATENOLOL (TENORMIN) [Concomitant]
  4. TRAZODONE (DESYREL) [Concomitant]
  5. OMEPRAZOLE (PRILOSEC) [Concomitant]
  6. VELCADE [Concomitant]
     Active Substance: BORTEZOMIB
  7. ONDANSETRON (ZOFRAN, AS HYDROCHLORIDE) [Concomitant]
  8. SULFAMETHOXAZOLE-TRIMETHOPRIM (BACTRIM/SEPTRA DS) [Concomitant]
  9. DULOXETINE (CYMBALTA) [Concomitant]
  10. HYDROCODONE-ACETAMINOPHEN (NORCO) [Concomitant]
  11. ACYCLOVIR (ZOVIRAX) [Concomitant]
  12. ISONIAZID (NYDRAZID) + OPYRIDOXINE (VITAMIN B-6) [Concomitant]
  13. PAMIDRONATE INFUSION [Concomitant]
  14. GABAPENTIN (NEURONTIN) [Concomitant]
  15. REVLIMID [Suspect]
     Active Substance: LENALIDOMIDE
     Dosage: X14/21D
     Route: 048
     Dates: start: 201409
  16. DEXAMETHASONE (DECADRON) [Concomitant]
  17. LORAZEPAM (ATIVAN) [Concomitant]
  18. TRAZODONE (DESYREL) [Concomitant]
  19. NARATRIPTAN (AMERGE) [Concomitant]

REACTIONS (3)
  - Muscle spasms [None]
  - Lethargy [None]
  - Myalgia [None]
